FAERS Safety Report 22190001 (Version 3)
Quarter: 2023Q2

REPORT INFORMATION
  Report Type: Report from Study
  Country: TR (occurrence: TR)
  Receive Date: 20230410
  Receipt Date: 20230420
  Transmission Date: 20230722
  Serious: Yes (Hospitalization, Other)
  Sender: FDA-Public Use
  Company Number: TR-ABBVIE-4714082

PATIENT
  Age: 46 Year
  Sex: Female
  Weight: 65 kg

DRUGS (3)
  1. CARBIDOPA\LEVODOPA [Suspect]
     Active Substance: CARBIDOPA\LEVODOPA
     Indication: Parkinson^s disease
     Dosage: MORNING DOSE (ML): 3.60 CONTINUOUS DOSE (ML): 2.80 EXTRA DOSE (ML): 0.50
     Route: 050
     Dates: start: 20230410
  2. CARBIDOPA\LEVODOPA [Suspect]
     Active Substance: CARBIDOPA\LEVODOPA
     Dosage: MORNING DOSE (ML): 3.60 CONTINUOUS DOSE (ML): 2.80 EXTRA DOSE (ML): 0.50
     Route: 050
     Dates: start: 20230327, end: 20230405
  3. Ropinirole (REQUIP) [Concomitant]
     Indication: Parkinson^s disease
     Dosage: FORM STRENGTH: 8 MILLIGRAM, FREQUENCY TEXT: 1X0.5
     Route: 048

REACTIONS (4)
  - Acute abdomen [Recovered/Resolved]
  - Abdominal pain [Recovered/Resolved]
  - Stoma site discharge [Recovered/Resolved]
  - Incorrect route of product administration [Not Recovered/Not Resolved]

NARRATIVE: CASE EVENT DATE: 20230330
